FAERS Safety Report 11222371 (Version 2)
Quarter: 2016Q1

REPORT INFORMATION
  Report Type: Spontaneous
  Country: CH (occurrence: CH)
  Receive Date: 20150626
  Receipt Date: 20160119
  Transmission Date: 20160525
  Serious: Yes (Death)
  Sender: FDA-Public Use
  Company Number: CH-BAYER-2015-361613

PATIENT
  Age: 67 Year
  Sex: Male

DRUGS (6)
  1. ACETYLSALICYLIC ACID({=100 MG) [Suspect]
     Active Substance: ASPIRIN
     Dosage: 300 MG LOADING DOSE
  2. TIROFIBAN [Concomitant]
     Active Substance: TIROFIBAN
     Dosage: UNK
  3. TICAGRELOR [Concomitant]
     Active Substance: TICAGRELOR
     Dosage: 90 MG, BID
     Route: 058
  4. ACETYLSALICYLIC ACID({=100 MG) [Suspect]
     Active Substance: ASPIRIN
     Dosage: 75 MG, QD
  5. TICAGRELOR [Concomitant]
     Active Substance: TICAGRELOR
     Dosage: 180 MG, LOADING DOSE
  6. ENOXAPARIN [Concomitant]
     Active Substance: ENOXAPARIN
     Dosage: 1 MG/KG, UNK
     Route: 058

REACTIONS (1)
  - Subarachnoid haemorrhage [Fatal]
